FAERS Safety Report 8480081-9 (Version None)
Quarter: 2012Q2

REPORT INFORMATION
  Report Type: 
  Country: None (occurrence: None)
  Receive Date: 20120629
  Receipt Date: 20120620
  Transmission Date: 20120825
  Serious: Yes (Other)
  Sender: FDA-Public Use
  Company Number: US-ELI_LILLY_AND_COMPANY-US201206007452

PATIENT
  Sex: Female

DRUGS (6)
  1. ALPRAZOLAM [Concomitant]
     Dosage: 0.25 DF, BID
  2. WELLBUTRIN [Concomitant]
     Dosage: UNK UNK, QD
  3. VITAMIN TAB [Concomitant]
     Dosage: UNK
  4. HYDROCHLOROTHIAZIDE [Concomitant]
     Dosage: 0.25 DF, UNK
  5. FORTEO [Suspect]
     Indication: OSTEOPOROSIS
     Dosage: 20 UG, QD
     Dates: start: 20120417
  6. CITALOPRAM HYDROBROMIDE [Concomitant]
     Dosage: UNK, QD

REACTIONS (1)
  - BREAST CANCER [None]
